FAERS Safety Report 8398446-2 (Version None)
Quarter: 2012Q2

REPORT INFORMATION
  Report Type: 
  Country: None (occurrence: None)
  Receive Date: 20120531
  Receipt Date: 20120523
  Transmission Date: 20120825
  Serious: Yes (Hospitalization)
  Sender: FDA-Public Use
  Company Number: US-BAYER-2012-015867

PATIENT
  Age: 29 Year
  Sex: Female
  Weight: 95.238 kg

DRUGS (9)
  1. DROSPIRENONE AND ETHINYL ESTRADIOL [Suspect]
     Indication: CONTRACEPTION
     Dosage: UNK
     Dates: start: 20091101, end: 20100101
  2. PROPOXYPHENAPAP 100-650 [Concomitant]
     Dosage: UNK
     Dates: start: 20100107
  3. YAZ [Suspect]
     Indication: CONTRACEPTION
     Dosage: UNK
     Dates: start: 20090601, end: 20091101
  4. DARVOCET-N 50 [Concomitant]
  5. ANTIBIOTICS [Concomitant]
  6. YASMIN [Suspect]
     Indication: CONTRACEPTION
     Dosage: UNK
     Dates: start: 20080801, end: 20090501
  7. CYANOCOBALAMIN [Concomitant]
  8. VENTOLIN HFA [Concomitant]
     Dosage: 90 ?G, UNK
     Route: 045
     Dates: start: 20091230
  9. PROPOXYPHENAPAP 100-650 [Concomitant]
     Dosage: UNK
     Route: 048
     Dates: start: 20100106

REACTIONS (5)
  - PULMONARY EMBOLISM [None]
  - OEDEMA PERIPHERAL [None]
  - INJURY [None]
  - PAIN [None]
  - DEEP VEIN THROMBOSIS [None]
